FAERS Safety Report 5953684-0 (Version None)
Quarter: 2008Q4

REPORT INFORMATION
  Report Type: 
  Country: None (occurrence: None)
  Receive Date: 20081114
  Receipt Date: 20060110
  Transmission Date: 20090506
  Serious: Yes (Hospitalization)
  Sender: FDA-Public Use
  Company Number: US-BRISTOL-MYERS SQUIBB COMPANY-14376917

PATIENT
  Age: 73 Year
  Sex: Male
  Weight: 66 kg

DRUGS (15)
  1. CETUXIMAB [Suspect]
     Indication: NON-SMALL CELL LUNG CANCER
     Dosage: START DATE : 14-NOV-2005
     Route: 042
     Dates: start: 20051121, end: 20051121
  2. PEMETREXED DISODIUM [Suspect]
     Indication: NON-SMALL CELL LUNG CANCER
     Route: 042
     Dates: start: 20051114, end: 20051114
  3. VITAMIN B-12 [Concomitant]
     Dosage: 25 MG/M2
     Route: 030
  4. MULTI-VITAMIN [Concomitant]
     Dosage: 1 DOSAGE FORM = 1 TAB
     Route: 048
  5. MEGACE [Concomitant]
  6. ZINC SULFATE [Concomitant]
     Route: 048
  7. FERROUS SULFATE [Concomitant]
     Route: 048
  8. SPIRIVA [Concomitant]
     Dosage: 1 DOSAGE FORM = 1 CAP, 2 PUFFS DAILY
     Route: 055
  9. COMBIVENT [Concomitant]
     Dosage: 1 DOSAGE FORM = 2 PUFFS
     Route: 055
  10. ASCORBIC ACID [Concomitant]
     Route: 048
  11. ZOFRAN [Concomitant]
     Dosage: Q6H
     Route: 042
  12. PHENERGAN HCL [Concomitant]
     Dosage: Q6H
     Route: 042
  13. ATIVAN [Concomitant]
     Dosage: Q8H
     Route: 048
  14. VICODIN [Concomitant]
     Dosage: 1 DOSAGE FORM = 7.5/500 1 TAB ALSO TAKE 1-2 TABS Q6H
     Route: 048
  15. TYLENOL [Concomitant]

REACTIONS (1)
  - ATRIAL FIBRILLATION [None]
